FAERS Safety Report 24098013 (Version 1)
Quarter: 2024Q3

REPORT INFORMATION
  Report Type: Spontaneous
  Country: CN (occurrence: CN)
  Receive Date: 20240716
  Receipt Date: 20240716
  Transmission Date: 20241017
  Serious: Yes (Life-Threatening, Other)
  Sender: BRISTOL MYERS SQUIBB
  Company Number: CN-MLMSERVICE-20240705-PI120760-00255-1

PATIENT
  Age: 45 Year
  Sex: Female

DRUGS (5)
  1. PACLITAXEL [Suspect]
     Active Substance: PACLITAXEL
     Indication: Cervix carcinoma recurrent
     Dates: start: 202206, end: 202206
  2. NIMOTUZUMAB [Concomitant]
     Active Substance: NIMOTUZUMAB
     Indication: Cervix carcinoma recurrent
     Dates: start: 202206
  3. NIMOTUZUMAB [Concomitant]
     Active Substance: NIMOTUZUMAB
     Dates: start: 20220723, end: 20221025
  4. CAMRELIZUMAB [Concomitant]
     Active Substance: CAMRELIZUMAB
     Indication: Cervix carcinoma recurrent
     Dates: start: 202206
  5. CAMRELIZUMAB [Concomitant]
     Active Substance: CAMRELIZUMAB
     Dates: start: 20220723, end: 20221025

REACTIONS (4)
  - Hypoaesthesia [Unknown]
  - Arthralgia [Unknown]
  - Myelosuppression [Unknown]
  - Off label use [Unknown]

NARRATIVE: CASE EVENT DATE: 20220601
